FAERS Safety Report 15249937 (Version 3)
Quarter: 2018Q4

REPORT INFORMATION
  Report Type: Spontaneous
  Country: US (occurrence: US)
  Receive Date: 20180807
  Receipt Date: 20181009
  Transmission Date: 20190204
  Serious: Yes (Hospitalization, Other)
  Sender: FDA-Public Use
  Company Number: US-GLAXOSMITHKLINE-US2018136225

PATIENT
  Sex: Male

DRUGS (3)
  1. LAMICTAL [Suspect]
     Active Substance: LAMOTRIGINE
     Dosage: 550 MG, QD
  2. DILANTIN [Suspect]
     Active Substance: PHENYTOIN
     Indication: PRODUCT USED FOR UNKNOWN INDICATION
     Dosage: UNK
  3. LAMICTAL [Suspect]
     Active Substance: LAMOTRIGINE
     Indication: FOCAL DYSCOGNITIVE SEIZURES
     Dosage: 100 MG, UNK
     Dates: start: 1996

REACTIONS (15)
  - Upper limb fracture [Unknown]
  - Movement disorder [Unknown]
  - Humerus fracture [Recovered/Resolved]
  - Rotator cuff syndrome [Unknown]
  - Femur fracture [Unknown]
  - Seizure [Unknown]
  - Osteonecrosis [Recovered/Resolved]
  - Amnesia [Not Recovered/Not Resolved]
  - Generalised tonic-clonic seizure [Recovered/Resolved]
  - Periarthritis [Unknown]
  - Shoulder operation [Recovered/Resolved]
  - Fall [Recovered/Resolved]
  - Arthropathy [Unknown]
  - Cerebral lobotomy [Recovered/Resolved with Sequelae]
  - Overdose [Recovered/Resolved]

NARRATIVE: CASE EVENT DATE: 1996
